FAERS Safety Report 12486963 (Version 1)
Quarter: 2016Q2

REPORT INFORMATION
  Report Type: Spontaneous
  Country: US (occurrence: None)
  Receive Date: 20160621
  Receipt Date: 20160621
  Transmission Date: 20160815
  Serious: Yes (Hospitalization)
  Sender: FDA-Public Use
  Company Number: None

PATIENT
  Age: 75 Year
  Sex: Male
  Weight: 80.74 kg

DRUGS (3)
  1. CLOBETASOL PROPIONATE CREA [Concomitant]
  2. MINOCYCLINE, 100 MG AUROBIND [Suspect]
     Active Substance: MINOCYCLINE\MINOCYCLINE HYDROCHLORIDE
     Indication: ROSACEA
     Dosage: 30 CAPSULE(S) TWICE A DAY TAKEN BY MOUTH
     Route: 048
     Dates: start: 20160210, end: 20160319
  3. IP6 WITH INOSITOL [Concomitant]

REACTIONS (5)
  - Headache [None]
  - Dyspnoea [None]
  - Influenza [None]
  - Musculoskeletal stiffness [None]
  - Myocardial infarction [None]

NARRATIVE: CASE EVENT DATE: 20160312
